FAERS Safety Report 17246853 (Version 5)
Quarter: 2020Q2

REPORT INFORMATION
  Report Type: Spontaneous
  Country: US (occurrence: US)
  Receive Date: 20200108
  Receipt Date: 20200424
  Transmission Date: 20200713
  Serious: No
  Sender: FDA-Public Use
  Company Number: US-PFIZER INC-2020005589

PATIENT
  Age: 70 Year
  Sex: Female
  Weight: 61 kg

DRUGS (3)
  1. ZOFRAN [Concomitant]
     Active Substance: ONDANSETRON HYDROCHLORIDE
     Dosage: UNK
  2. IBRANCE [Suspect]
     Active Substance: PALBOCICLIB
     Dosage: 1 DF, CYCLIC (ONE CAPSULE A DAY, BY MOUTH, FOR 21 DAYS; OFF FOR SEVEN)
     Route: 048
  3. IBRANCE [Suspect]
     Active Substance: PALBOCICLIB
     Indication: BREAST CANCER METASTATIC
     Dosage: 125 MG, UNK

REACTIONS (11)
  - Malaise [Unknown]
  - Condition aggravated [Unknown]
  - Nausea [Unknown]
  - Weight increased [Unknown]
  - Memory impairment [Unknown]
  - Cough [Unknown]
  - Nasopharyngitis [Unknown]
  - Fatigue [Unknown]
  - Visual acuity reduced [Unknown]
  - Abdominal discomfort [Unknown]
  - Influenza [Unknown]
